FAERS Safety Report 25302664 (Version 1)
Quarter: 2025Q2

REPORT INFORMATION
  Report Type: Spontaneous
  Country: FR (occurrence: FR)
  Receive Date: 20250512
  Receipt Date: 20250512
  Transmission Date: 20250716
  Serious: Yes (Hospitalization, Other)
  Sender: GILEAD
  Company Number: None

PATIENT
  Age: 73 Year
  Sex: Male
  Weight: 61 kg

DRUGS (11)
  1. YESCARTA [Suspect]
     Active Substance: AXICABTAGENE CILOLEUCEL
     Indication: B-cell lymphoma
     Route: 042
     Dates: start: 20250303
  2. TOCILIZUMAB [Suspect]
     Active Substance: TOCILIZUMAB
     Indication: B-cell lymphoma
     Dosage: 3 DOSAGE FORM (3 INJ TOTAL), QD
     Route: 042
     Dates: start: 20250306, end: 20250308
  3. BACTRIM [Concomitant]
     Active Substance: SULFAMETHOXAZOLE\TRIMETHOPRIM
  4. LEUCOVORIN CALCIUM [Concomitant]
     Active Substance: LEUCOVORIN CALCIUM
  5. LANSOPRAZOLE [Concomitant]
     Active Substance: LANSOPRAZOLE
  6. KARDEGIC [Concomitant]
     Active Substance: ASPIRIN DL-LYSINE
  7. SYNJARDY [Concomitant]
     Active Substance: EMPAGLIFLOZIN\METFORMIN HYDROCHLORIDE
  8. TOUJEO [Concomitant]
     Active Substance: INSULIN GLARGINE
  9. NOVORAPID [Concomitant]
     Active Substance: INSULIN ASPART
  10. FILGRASTIM [Concomitant]
     Active Substance: FILGRASTIM
  11. ERYTHROPOIETIN [Concomitant]
     Active Substance: ERYTHROPOIETIN

REACTIONS (4)
  - Enanthema [Recovering/Resolving]
  - Keratitis [Recovering/Resolving]
  - Paronychia [Recovering/Resolving]
  - Rash [Recovering/Resolving]

NARRATIVE: CASE EVENT DATE: 20250320
